FAERS Safety Report 14389122 (Version 2)
Quarter: 2018Q2

REPORT INFORMATION
  Report Type: Spontaneous
  Country: US (occurrence: US)
  Receive Date: 20180115
  Receipt Date: 20180615
  Transmission Date: 20180711
  Serious: Yes (Other)
  Sender: FDA-Public Use
  Company Number: US-SA-2017SA234226

PATIENT
  Sex: Female
  Weight: 113 kg

DRUGS (6)
  1. TAXOTERE [Suspect]
     Active Substance: DOCETAXEL
     Indication: BREAST CANCER
     Dosage: 75 MG/M2,Q3W
     Route: 042
     Dates: start: 20070906, end: 20070906
  2. ESTROGEN [Concomitant]
     Active Substance: ESTROGENS
     Indication: CHEMOTHERAPY
     Dosage: UNK
     Route: 065
  3. NEOSAR [Concomitant]
     Active Substance: CYCLOPHOSPHAMIDE
     Indication: CHEMOTHERAPY
     Dosage: UNK
     Route: 065
  4. TAXOTERE [Suspect]
     Active Substance: DOCETAXEL
     Dosage: 75 MG/M2,Q3W
     Route: 042
     Dates: start: 20071227, end: 20071227
  5. LISINOPRIL. [Concomitant]
     Active Substance: LISINOPRIL
     Indication: CHEMOTHERAPY
     Dosage: UNK
     Route: 065
     Dates: start: 1997
  6. DOXORUBICIN [Concomitant]
     Active Substance: DOXORUBICIN
     Indication: CHEMOTHERAPY
     Dosage: UNK
     Route: 065

REACTIONS (2)
  - Psychological trauma [Unknown]
  - Alopecia [Recovering/Resolving]

NARRATIVE: CASE EVENT DATE: 200801
